FAERS Safety Report 7911113-1 (Version None)
Quarter: 2011Q4

REPORT INFORMATION
  Report Type: 
  Country: None (occurrence: None)
  Receive Date: 20111109
  Receipt Date: 20111027
  Transmission Date: 20120403
  Serious: Yes (Hospitalization)
  Sender: FDA-Public Use
  Company Number: 1000025241

PATIENT
  Age: 85 Year
  Sex: Female

DRUGS (6)
  1. PLAVIX (CLOPIDOGREL BISULFATE) (75 MILLIGRAM, TABLETS) (CLOPIDOGREL SU [Concomitant]
  2. EUPRESSYL (URAPIDIL) [Suspect]
     Indication: HYPERTENSION
     Dosage: ORAL
     Route: 048
  3. OMEPRAZOLE [Concomitant]
  4. COVERAM (PERINDOPRIL, AMLODIPINE) [Suspect]
     Indication: HYPERTENSION
     Dosage: ORAL
     Route: 048
  5. PANTOPRAZOLE [Suspect]
     Indication: OESOPHAGITIS
     Dosage: ORAL
     Route: 048
  6. ESCITALOPRAM [Suspect]
     Indication: ANXIETY
     Dosage: ORAL
     Route: 048

REACTIONS (4)
  - IATROGENIC INJURY [None]
  - HYPOTENSION [None]
  - FALL [None]
  - LOSS OF CONSCIOUSNESS [None]
